FAERS Safety Report 8616178-X (Version None)
Quarter: 2012Q3

REPORT INFORMATION
  Report Type: 
  Country: None (occurrence: None)
  Receive Date: 20120823
  Receipt Date: 20120816
  Transmission Date: 20120928
  Serious: Yes (Hospitalization)
  Sender: FDA-Public Use
  Company Number: JP-BRISTOL-MYERS SQUIBB COMPANY-16880775

PATIENT
  Age: 48 Year
  Sex: Female
  Weight: 50 kg

DRUGS (9)
  1. ORENCIA [Suspect]
     Indication: RHEUMATOID ARTHRITIS
     Dosage: 02FEB11,2MAR11,30MAR11,20APR11,18MAY11,06JUL11.INTRPD ON:30NOV2011, RESUMED ON:15FEB2012
     Route: 042
     Dates: start: 20110105
  2. METHOTREXATE [Concomitant]
     Indication: RHEUMATOID ARTHRITIS
  3. LAXOBERON [Concomitant]
  4. ZYRTEC [Concomitant]
  5. VOLTAREN [Concomitant]
     Indication: RHEUMATOID ARTHRITIS
     Dosage: TABS
  6. FOLIC ACID [Concomitant]
     Indication: PROPHYLAXIS
  7. PREDNISOLONE [Concomitant]
     Indication: RHEUMATOID ARTHRITIS
  8. TEPRENONE [Concomitant]
     Indication: GASTRITIS PROPHYLAXIS
  9. MAGLAX [Concomitant]

REACTIONS (1)
  - ARTHROPATHY [None]
